FAERS Safety Report 7541405-X (Version None)
Quarter: 2011Q2

REPORT INFORMATION
  Report Type: 
  Country: None (occurrence: None)
  Receive Date: 20110613
  Receipt Date: 20110601
  Transmission Date: 20111010
  Serious: No
  Sender: FDA-Public Use
  Company Number: US-BIOGENIDEC-2011BI013293

PATIENT
  Sex: Male

DRUGS (1)
  1. TYSABRI [Suspect]
     Indication: CROHN'S DISEASE
     Route: 042
     Dates: start: 20100825

REACTIONS (8)
  - GAIT DISTURBANCE [None]
  - SLEEP DISORDER [None]
  - PAIN IN EXTREMITY [None]
  - COORDINATION ABNORMAL [None]
  - INSOMNIA [None]
  - MUSCULOSKELETAL STIFFNESS [None]
  - JOINT STIFFNESS [None]
  - ARTHRALGIA [None]
